FAERS Safety Report 10227309 (Version 1)
Quarter: 2014Q2

REPORT INFORMATION
  Report Type: Spontaneous
  Country: US (occurrence: US)
  Receive Date: 20140610
  Receipt Date: 20140610
  Transmission Date: 20141212
  Serious: Yes (Hospitalization)
  Sender: FDA-Public Use
  Company Number: US-ELI_LILLY_AND_COMPANY-US201406000389

PATIENT
  Sex: Female

DRUGS (1)
  1. HUMALOG LISPRO [Suspect]
     Indication: TYPE 2 DIABETES MELLITUS
     Dosage: 5 U, OTHER
     Route: 065
     Dates: start: 2011

REACTIONS (5)
  - Abdominal pain lower [Unknown]
  - Pain [Recovering/Resolving]
  - Blister infected [Unknown]
  - Blister [Unknown]
  - Blood glucose increased [Unknown]
